FAERS Safety Report 6837627-3 (Version None)
Quarter: 2010Q3

REPORT INFORMATION
  Report Type: 
  Country: None (occurrence: None)
  Receive Date: 20100713
  Receipt Date: 20070517
  Transmission Date: 20110219
  Serious: Yes (Other)
  Sender: FDA-Public Use
  Company Number: US-PFIZER INC-2007040283

PATIENT
  Sex: Male

DRUGS (1)
  1. CHANTIX [Suspect]
     Dates: start: 20070101

REACTIONS (4)
  - BACK PAIN [None]
  - DEPRESSION [None]
  - FATIGUE [None]
  - HYPERSOMNIA [None]
